FAERS Safety Report 25493933 (Version 1)
Quarter: 2025Q2

REPORT INFORMATION
  Report Type: Report from Study
  Country: US (occurrence: US)
  Receive Date: 20250630
  Receipt Date: 20250630
  Transmission Date: 20250717
  Serious: Yes (Hospitalization)
  Sender: EISAI
  Company Number: US-Eisai-EC-2025-191825

PATIENT
  Age: 62 Year
  Sex: Male

DRUGS (4)
  1. LENVIMA [Suspect]
     Active Substance: LENVATINIB
     Indication: Renal cancer
     Dates: start: 2025, end: 2025
  2. LENVIMA [Suspect]
     Active Substance: LENVATINIB
     Dates: start: 2025, end: 2025
  3. LENVIMA [Suspect]
     Active Substance: LENVATINIB
     Dosage: MISSED DOSES FOR 2 WEEKS BECAUSE HE FORGOT TO REFILL MEDICATION AND HAD ISSUES WITH INSURANCE
     Dates: start: 2025, end: 2025
  4. LENVIMA [Suspect]
     Active Substance: LENVATINIB
     Dosage: MISSED 2 DAYS OF LENVIMA DUE TO TRAVEL AND FORGOT TO BRING MEDICATION
     Dates: start: 2025

REACTIONS (7)
  - Abdominal pain upper [Not Recovered/Not Resolved]
  - Dehydration [Unknown]
  - Electrolyte imbalance [Unknown]
  - Nausea [Not Recovered/Not Resolved]
  - Diarrhoea [Not Recovered/Not Resolved]
  - Decreased appetite [Not Recovered/Not Resolved]
  - Heart rate increased [Unknown]

NARRATIVE: CASE EVENT DATE: 20250101
